FAERS Safety Report 4503503-4 (Version None)
Quarter: 2004Q4

REPORT INFORMATION
  Report Type: 
  Country: None (occurrence: None)
  Receive Date: 20041115
  Receipt Date: 20041104
  Transmission Date: 20050328
  Serious: Yes (Hospitalization, Disabling)
  Sender: FDA-Public Use
  Company Number: 2004PK01875

PATIENT
  Age: 47 Year
  Sex: Male

DRUGS (3)
  1. IRESSA [Suspect]
     Indication: CARCINOMA
     Dosage: 375 MG DAILY PO
     Route: 048
     Dates: start: 20040225, end: 20041028
  2. BELOC ZOK [Concomitant]
  3. DIGIMERCK [Concomitant]

REACTIONS (1)
  - OESOPHAGITIS [None]
